FAERS Safety Report 4272571-X (Version None)
Quarter: 2004Q1

REPORT INFORMATION
  Report Type: 
  Country: None (occurrence: None)
  Receive Date: 20040114
  Receipt Date: 20040114
  Transmission Date: 20041129
  Serious: Yes (Life-Threatening)
  Sender: FDA-Public Use
  Company Number: None

PATIENT
  Age: 73 Year
  Sex: Male
  Weight: 76.6579 kg

DRUGS (2)
  1. COUMADIN [Suspect]
     Indication: ATRIAL FIBRILLATION
     Dates: start: 20030101
  2. COUMADIN [Suspect]
     Indication: HORMONE REPLACEMENT THERAPY
     Dates: start: 20030101

REACTIONS (1)
  - FEELING ABNORMAL [None]
